FAERS Safety Report 5161157-0 (Version None)
Quarter: 2006Q4

REPORT INFORMATION
  Report Type: 
  Country: None (occurrence: None)
  Receive Date: 20061121
  Receipt Date: 20061107
  Transmission Date: 20070319
  Serious: Yes (Life-Threatening, Hospitalization)
  Sender: FDA-Public Use
  Company Number: 2006AP000977

PATIENT
  Age: 37 Year
  Sex: Male

DRUGS (3)
  1. METFORMIN HCL [Suspect]
     Indication: DIABETES MELLITUS
     Dosage: 45 GM;QD
     Route: 048
  2. GLYBURIDE [Suspect]
     Dosage: 150 MG;PO
     Route: 048
  3. ATORVASTATIN CALCIUM [Suspect]
     Dosage: 600 MG;PO;QD
     Route: 048

REACTIONS (15)
  - BLOOD PRESSURE SYSTOLIC INCREASED [None]
  - BODY TEMPERATURE DECREASED [None]
  - BRADYCARDIA [None]
  - DISORIENTATION [None]
  - GENERAL PHYSICAL HEALTH DETERIORATION [None]
  - HAEMODIALYSIS [None]
  - HAEMODYNAMIC INSTABILITY [None]
  - HYPOTENSION [None]
  - LACTIC ACIDOSIS [None]
  - LETHARGY [None]
  - MULTIPLE DRUG OVERDOSE INTENTIONAL [None]
  - RENAL FAILURE ACUTE [None]
  - RESPIRATORY FAILURE [None]
  - THROMBOSIS IN DEVICE [None]
  - VENTRICULAR TACHYCARDIA [None]
